FAERS Safety Report 12724396 (Version 1)
Quarter: 2016Q3

REPORT INFORMATION
  Report Type: Spontaneous
  Country: US (occurrence: US)
  Receive Date: 20160906
  Receipt Date: 20160906
  Transmission Date: 20161109
  Serious: Yes (Disabling)
  Sender: FDA-Public Use
  Company Number: None

PATIENT
  Age: 43 Year
  Sex: Female
  Weight: 56.25 kg

DRUGS (15)
  1. VALIUM [Concomitant]
     Active Substance: DIAZEPAM
     Indication: SCIATICA
  2. HYDROCODONE/ACETAMINOPHEN [Suspect]
     Active Substance: ACETAMINOPHEN\HYDROCODONE
     Indication: SCIATICA
     Route: 048
  3. VALIUM [Concomitant]
     Active Substance: DIAZEPAM
     Indication: ARTHRITIS
  4. PRAZOSIN [Concomitant]
     Active Substance: PRAZOSIN
  5. CRESTOR [Concomitant]
     Active Substance: ROSUVASTATIN CALCIUM
  6. GABAPENTIN. [Concomitant]
     Active Substance: GABAPENTIN
  7. MELATONIN [Concomitant]
     Active Substance: MELATONIN
  8. TRAZODONE [Concomitant]
     Active Substance: TRAZODONE HYDROCHLORIDE
  9. TOPIRAMATE. [Concomitant]
     Active Substance: TOPIRAMATE
  10. VIBERZI [Concomitant]
     Active Substance: ELUXADOLINE
  11. VALIUM [Concomitant]
     Active Substance: DIAZEPAM
  12. HYDROCODONE [Concomitant]
     Active Substance: HYDROCODONE
  13. VIT D/CALCIUM [Concomitant]
  14. VALIUM [Concomitant]
     Active Substance: DIAZEPAM
     Indication: FIBROMYALGIA
  15. VITAMIN E [Concomitant]
     Active Substance: .ALPHA.-TOCOPHEROL

REACTIONS (8)
  - Dysstasia [None]
  - Abasia [None]
  - Irritable bowel syndrome [None]
  - Product quality issue [None]
  - Pain [None]
  - Drug ineffective [None]
  - Malaise [None]
  - Drug withdrawal syndrome [None]

NARRATIVE: CASE EVENT DATE: 20160818
